FAERS Safety Report 4983839-3 (Version None)
Quarter: 2006Q2

REPORT INFORMATION
  Report Type: 
  Country: None (occurrence: None)
  Receive Date: 20060426
  Receipt Date: 20051117
  Transmission Date: 20061013
  Serious: Yes (Hospitalization)
  Sender: FDA-Public Use
  Company Number: US-MERCK-0511USA03160

PATIENT
  Age: 87 Year
  Sex: Female
  Weight: 64 kg

DRUGS (5)
  1. VIOXX [Suspect]
     Indication: ARTHRITIS
     Route: 048
     Dates: start: 20040405, end: 20040901
  2. FOSAMAX [Concomitant]
     Indication: OSTEOPOROSIS
     Route: 065
  3. NORVASC [Concomitant]
     Indication: BLOOD PRESSURE
     Route: 065
  4. PROZAC [Concomitant]
     Indication: DEPRESSION
     Route: 065
  5. ASPIRIN [Concomitant]
     Route: 065

REACTIONS (10)
  - AORTIC ARTERIOSCLEROSIS [None]
  - CALCINOSIS [None]
  - CAROTID ARTERY STENOSIS [None]
  - CEREBROVASCULAR ACCIDENT [None]
  - INTRACRANIAL ANEURYSM [None]
  - PNEUMONIA [None]
  - SEBORRHOEIC KERATOSIS [None]
  - SKIN CANCER [None]
  - TRANSIENT ISCHAEMIC ATTACK [None]
  - VENTRICULAR HYPERTROPHY [None]
